FAERS Safety Report 10732140 (Version 1)
Quarter: 2015Q1

REPORT INFORMATION
  Report Type: Spontaneous
  Country: US (occurrence: None)
  Receive Date: 20150120
  Receipt Date: 20150120
  Transmission Date: 20150721
  Serious: Yes (Death)
  Sender: FDA-Public Use
  Company Number: 2015010033

PATIENT
  Age: 85 Year
  Sex: Female

DRUGS (11)
  1. SERTRALINE [Suspect]
     Active Substance: SERTRALINE HYDROCHLORIDE
  2. FUROSEMIDE (FUROSEMIDE) [Suspect]
     Active Substance: FUROSEMIDE
  3. WARFARIN (WARFARIN) [Suspect]
     Active Substance: WARFARIN
  4. DILTIAZEM (EXTENDED RELEASE) (DILTIAZEM) [Suspect]
     Active Substance: DILTIAZEM
  5. ATENOLOL (ATENOLOL) [Suspect]
     Active Substance: ATENOLOL
  6. ZOLPIDEM (ZOLPIDEM) [Suspect]
     Active Substance: ZOLPIDEM TARTRATE
  7. LISINOPRIL (LISINOPRIL) [Suspect]
     Active Substance: LISINOPRIL
  8. AMLODIPINE [Suspect]
     Active Substance: AMLODIPINE BESYLATE
  9. NITROGLYCERIN (NITROGLYCERIN) [Suspect]
     Active Substance: NITROGLYCERIN
  10. ATORVASTATIN (ATORVASTATIN) [Suspect]
     Active Substance: ATORVASTATIN
  11. DONEPEZIL (DONEPEZIL) [Suspect]
     Active Substance: DONEPEZIL

REACTIONS (2)
  - Adverse drug reaction [None]
  - Exposure via ingestion [None]

NARRATIVE: CASE EVENT DATE: 2013
